FAERS Safety Report 6193733-0 (Version None)
Quarter: 2009Q2

REPORT INFORMATION
  Report Type: 
  Country: None (occurrence: None)
  Receive Date: 20090518
  Receipt Date: 20090325
  Transmission Date: 20091009
  Serious: Yes (Other)
  Sender: FDA-Public Use
  Company Number: US-PFIZER INC-2009190841

PATIENT
  Sex: Female

DRUGS (5)
  1. CHANTIX [Suspect]
     Dosage: FREQUENCY: 2X/DAY, EVERY DAY;
     Dates: start: 20090304
  2. VICODIN [Concomitant]
     Indication: PAIN
  3. DARVOCET [Concomitant]
     Indication: PAIN
  4. BENADRYL [Concomitant]
     Indication: HYPERSENSITIVITY
  5. CELEBREX [Concomitant]

REACTIONS (1)
  - PARANOIA [None]
